FAERS Safety Report 17099945 (Version 2)
Quarter: 2020Q1

REPORT INFORMATION
  Report Type: Spontaneous
  Country: CA (occurrence: CA)
  Receive Date: 20191202
  Receipt Date: 20200219
  Transmission Date: 20200409
  Serious: Yes (Hospitalization, Other)
  Sender: FDA-Public Use
  Company Number: CA-COVIS PHARMA B.V.-2019COV00286

PATIENT
  Age: 38 Year
  Sex: Male

DRUGS (22)
  1. FOLIC ACID. [Suspect]
     Active Substance: FOLIC ACID
     Dosage: Y5 MG, 1X/DAY
  2. METHOTREXATE. [Suspect]
     Active Substance: METHOTREXATE
     Indication: VASCULITIS
     Dosage: 25 MG, 1X/WEEK
     Route: 048
  3. SPIRIVA [Suspect]
     Active Substance: TIOTROPIUM BROMIDE MONOHYDRATE
     Indication: ASTHMA
  4. ZENHALE [Suspect]
     Active Substance: FORMOTEROL FUMARATE\MOMETASONE FUROATE
     Dosage: UNK, 2X/DAY
  5. POLYSACCHARIDE-IRON COMPLEX [Concomitant]
     Active Substance: FERRIC POLYSACCHARIDE COMPLEX
  6. SYMBICORT [Suspect]
     Active Substance: BUDESONIDE\FORMOTEROL FUMARATE DIHYDRATE
  7. PREDNISONE. [Suspect]
     Active Substance: PREDNISONE
     Dosage: 30 MG
  8. SALBUTAMOL SULFATE [Suspect]
     Active Substance: ALBUTEROL SULFATE
  9. SINGULAIR [Suspect]
     Active Substance: MONTELUKAST SODIUM
     Indication: ASTHMA
     Dosage: Q10 MG, 1X/DAY
  10. PREDNISONE. [Suspect]
     Active Substance: PREDNISONE
     Dosage: 20 MG
  11. VITAMIN D [Concomitant]
     Active Substance: VITAMIN D NOS
  12. OMNARIS [Suspect]
     Active Substance: CICLESONIDE
  13. TYLENOL [Suspect]
     Active Substance: ACETAMINOPHEN
  14. METHOTREXATE. [Suspect]
     Active Substance: METHOTREXATE
     Dosage: 15 MG, 1X/WEEK
     Route: 048
  15. PREDNISONE. [Suspect]
     Active Substance: PREDNISONE
     Dosage: 10 MG, 1X/DAY
  16. FOLATE [Concomitant]
     Active Substance: FOLATE SODIUM
     Dosage: 5 MG, 1X/DAY
     Route: 048
  17. PREDNISONE. [Suspect]
     Active Substance: PREDNISONE
     Dosage: 10 MG
  18. CALCIUM [Concomitant]
     Active Substance: CALCIUM
  19. VITAMIN B12/VITAMIN B6 [Concomitant]
     Dosage: 1000 ?G, 1X/DAY
     Route: 048
  20. ENTYVIO [Suspect]
     Active Substance: VEDOLIZUMAB
     Indication: COLITIS ULCERATIVE
     Route: 042
  21. PREDNISONE. [Suspect]
     Active Substance: PREDNISONE
     Dosage: 50 MG
  22. UMECLIDINIUM BROMIDE [Suspect]
     Active Substance: UMECLIDINIUM BROMIDE
     Indication: ASTHMA
     Dosage: UNK, 1X/DAY

REACTIONS (29)
  - Vasculitis [Recovering/Resolving]
  - Condition aggravated [Recovering/Resolving]
  - Wheezing [Recovering/Resolving]
  - Myalgia [Recovering/Resolving]
  - Decreased appetite [Recovering/Resolving]
  - Dyspnoea exertional [Recovering/Resolving]
  - Abdominal pain [Recovering/Resolving]
  - Anaemia [Recovering/Resolving]
  - Rectal haemorrhage [Recovering/Resolving]
  - Interstitial lung disease [Recovering/Resolving]
  - Pericardial effusion [Recovering/Resolving]
  - Systolic dysfunction [Recovering/Resolving]
  - Chest discomfort [Recovering/Resolving]
  - Insomnia [Recovering/Resolving]
  - Headache [Recovering/Resolving]
  - Dyspnoea [Recovering/Resolving]
  - Pulmonary function test decreased [Recovering/Resolving]
  - Treatment noncompliance [Unknown]
  - Gastrointestinal disorder [Recovering/Resolving]
  - Obstructive airways disorder [Recovering/Resolving]
  - Photophobia [Recovering/Resolving]
  - Sinusitis [Recovering/Resolving]
  - Asthma [Recovering/Resolving]
  - Blood test abnormal [Recovering/Resolving]
  - Eosinophilia [Recovering/Resolving]
  - Iron deficiency [Recovering/Resolving]
  - Hypotension [Recovering/Resolving]
  - Therapeutic product effect incomplete [Unknown]
  - Cough [Recovering/Resolving]
